FAERS Safety Report 11844799 (Version 1)
Quarter: 2015Q4

REPORT INFORMATION
  Report Type: Spontaneous
  Country: US (occurrence: None)
  Receive Date: 20151216
  Receipt Date: 20151216
  Transmission Date: 20160305
  Serious: Yes (Hospitalization)
  Sender: FDA-Public Use
  Company Number: None

PATIENT
  Age: 57 Year
  Sex: Female

DRUGS (1)
  1. ZITHROMAX [Suspect]
     Active Substance: AZITHROMYCIN DIHYDRATE
     Indication: BRONCHITIS
     Dates: start: 201508

REACTIONS (3)
  - Cardiac failure congestive [None]
  - Arrhythmia [None]
  - Pulmonary oedema [None]

NARRATIVE: CASE EVENT DATE: 20151025
